FAERS Safety Report 22321007 (Version 1)
Quarter: 2023Q2

REPORT INFORMATION
  Report Type: Spontaneous
  Country: US (occurrence: None)
  Receive Date: 20230512
  Receipt Date: 20230512
  Transmission Date: 20230722
  Serious: Yes (Hospitalization)
  Sender: FDA-Public Use
  Company Number: None

PATIENT
  Age: 52 Year
  Sex: Female
  Weight: 83.46 kg

DRUGS (15)
  1. WELIREG [Suspect]
     Active Substance: BELZUTIFAN
     Indication: Renal cancer
     Dosage: FREQUENCY : DAILY;?
     Route: 048
     Dates: end: 20230418
  2. ALBUTEROL SULFATE [Concomitant]
  3. ELIQUIS [Concomitant]
     Active Substance: APIXABAN
  4. LEVOTHYROXINE [Concomitant]
     Active Substance: LEVOTHYROXINE
  5. LORAZEPAM [Concomitant]
     Active Substance: LORAZEPAM
  6. DIPHENHYDRAMINE HYDROCHLORIDE\LIDOCAINE HYDROCHLORIDE\NYSTATIN [Concomitant]
     Active Substance: DIPHENHYDRAMINE HYDROCHLORIDE\LIDOCAINE HYDROCHLORIDE\NYSTATIN
  7. ZOFRAN [Concomitant]
     Active Substance: ONDANSETRON HYDROCHLORIDE
  8. PAXIL [Concomitant]
  9. PENTOXIFYLLINE [Concomitant]
     Active Substance: PENTOXIFYLLINE
  10. MIRALAX [Concomitant]
     Active Substance: POLYETHYLENE GLYCOL 3350
  11. VITAMIN E [Concomitant]
     Active Substance: .ALPHA.-TOCOPHEROL
  12. METHADONE [Concomitant]
     Active Substance: METHADONE HYDROCHLORIDE
  13. DILAUDID [Concomitant]
     Active Substance: HYDROMORPHONE HYDROCHLORIDE
  14. AMOXICILLIN [Concomitant]
     Active Substance: AMOXICILLIN
  15. CHLORHEXIDINE GLUCONATE [Concomitant]
     Active Substance: CHLORHEXIDINE GLUCONATE

REACTIONS (2)
  - Pain [None]
  - Therapy interrupted [None]
